FAERS Safety Report 14202654 (Version 1)
Quarter: 2017Q4

REPORT INFORMATION
  Report Type: Spontaneous
  Country: JP (occurrence: JP)
  Receive Date: 20171118
  Receipt Date: 20171118
  Transmission Date: 20180321
  Serious: Yes (Other)
  Sender: FDA-Public Use
  Company Number: JP-SUN PHARMACEUTICAL INDUSTRIES LTD-2017RR-154918

PATIENT
  Age: 63 Year
  Sex: Female
  Weight: 54 kg

DRUGS (23)
  1. OXALIPLATIN. [Suspect]
     Active Substance: OXALIPLATIN
     Indication: RECTAL CANCER
     Dosage: 130 MG/M2, 2 HR IV, DAY 1, EVERY 3 WEEKS
     Route: 042
  2. 5-FLUOROURACIL [Suspect]
     Active Substance: FLUOROURACIL
     Indication: METASTASES TO OVARY
  3. CALCIUM FOLINAT [Suspect]
     Active Substance: LEUCOVORIN CALCIUM
     Indication: METASTASES TO LUNG
     Dosage: 200 MG/M2, 2HR, DAY 1
     Route: 042
  4. CALCIUM FOLINAT [Suspect]
     Active Substance: LEUCOVORIN CALCIUM
     Indication: METASTASES TO OVARY
  5. REGORAFENIB [Concomitant]
     Active Substance: REGORAFENIB
     Indication: METASTASES TO OVARY
     Dosage: 40 MG, QD
     Route: 065
  6. CETUXIMAB. [Suspect]
     Active Substance: CETUXIMAB
     Indication: METASTASES TO LUNG
  7. TRAMADOL. [Suspect]
     Active Substance: TRAMADOL
     Dosage: 100 MG, DAILY
     Route: 065
  8. OLMESARTAN [Suspect]
     Active Substance: OLMESARTAN
     Dosage: 20 MG, DAILY
     Route: 048
  9. CAPECITABINE. [Suspect]
     Active Substance: CAPECITABINE
     Indication: RECTAL CANCER
     Dosage: 2000 MG/M2, DAIL, DAY 1 EVENING, DAY 15 MORNING
     Route: 048
  10. 5-FLUOROURACIL [Suspect]
     Active Substance: FLUOROURACIL
     Indication: METASTASES TO LUNG
     Dosage: 2400 MG/M2, 46HR, DAY 1-3
     Route: 042
  11. TRAMADOL. [Suspect]
     Active Substance: TRAMADOL
     Dosage: 200 MG, DAILY
     Route: 065
  12. PARACETAMOL [Suspect]
     Active Substance: ACETAMINOPHEN
     Indication: ABDOMINAL PAIN
     Dosage: 2400 MG, DAILY
     Route: 065
  13. CETUXIMAB. [Suspect]
     Active Substance: CETUXIMAB
     Indication: METASTASES TO PERITONEUM
     Dosage: 250 MG/KG, 1 HR, DAY 1, 8
     Route: 042
  14. IRINOTECAN [Suspect]
     Active Substance: IRINOTECAN
     Indication: METASTASES TO PERITONEUM
     Dosage: 150 MG/M2,90MIN, DAY 1
     Route: 042
  15. IRINOTECAN [Suspect]
     Active Substance: IRINOTECAN
     Indication: METASTASES TO LUNG
  16. 5-FLUOROURACIL [Suspect]
     Active Substance: FLUOROURACIL
     Indication: METASTASES TO PERITONEUM
     Dosage: 400 MG/M2, DAY 1
     Route: 040
  17. TRAMADOL. [Suspect]
     Active Substance: TRAMADOL
     Indication: ABDOMINAL PAIN
     Dosage: 100 MG, DAILY
     Route: 065
  18. TRAMADOL. [Suspect]
     Active Substance: TRAMADOL
     Dosage: 200 MG, DAILY
     Route: 065
  19. CALCIUM FOLINAT [Suspect]
     Active Substance: LEUCOVORIN CALCIUM
     Indication: METASTASES TO PERITONEUM
     Dosage: 200 MG/M2, 2HR, DAY 1
     Route: 042
  20. BEVACIZUMAB. [Suspect]
     Active Substance: BEVACIZUMAB
     Indication: METASTASES TO OVARY
     Dosage: 5 MG/KG, DAY 1, EVERY 2 WEEKS CYCLE
     Route: 042
  21. OXALIPLATIN. [Suspect]
     Active Substance: OXALIPLATIN
     Indication: METASTASES TO OVARY
     Dosage: 85 MG/M2, 2HR, DAY 1
     Route: 042
  22. TRAMADOL. [Suspect]
     Active Substance: TRAMADOL
     Dosage: 300 MG, DAILY
     Route: 065
  23. OLMESARTAN [Suspect]
     Active Substance: OLMESARTAN
     Indication: HYPERTENSION
     Dosage: 10 MG, DAILY
     Route: 048

REACTIONS (4)
  - Abdominal pain [Recovered/Resolved]
  - Drug hypersensitivity [Unknown]
  - Drug ineffective [Unknown]
  - Disease progression [Unknown]
